FAERS Safety Report 9414775 (Version 17)
Quarter: 2014Q4

REPORT INFORMATION
  Report Type: Report from Study
  Country: CA (occurrence: CA)
  Receive Date: 20130723
  Receipt Date: 20141128
  Transmission Date: 20150529
  Serious: Yes (Other)
  Sender: FDA-Public Use
  Company Number: PHHY2012CA018619

PATIENT
  Age: 32 Year
  Sex: Male
  Weight: 66.67 kg

DRUGS (5)
  1. EFFEXOR [Concomitant]
     Active Substance: VENLAFAXINE HYDROCHLORIDE
     Indication: DEPRESSIVE SYMPTOM
  2. ATIVAN [Concomitant]
     Active Substance: LORAZEPAM
     Indication: INSOMNIA
     Dosage: UNK UKN, UNK
  3. EXTAVIA [Suspect]
     Active Substance: INTERFERON BETA-1B
     Indication: SECONDARY PROGRESSIVE MULTIPLE SCLEROSIS
     Dosage: 8 MIU, QOD
     Route: 058
     Dates: start: 20120117, end: 201409
  4. EFFEXOR [Concomitant]
     Active Substance: VENLAFAXINE HYDROCHLORIDE
     Indication: DEPRESSION
     Dosage: 35.5 - 75 MG UNK
     Dates: start: 20130912
  5. EXTAVIA [Suspect]
     Active Substance: INTERFERON BETA-1B
     Dosage: 8 MIU, QOD
     Route: 058

REACTIONS (35)
  - Affective disorder [Unknown]
  - Impulsive behaviour [Unknown]
  - Gastrointestinal sounds abnormal [Unknown]
  - Decreased appetite [Unknown]
  - General physical health deterioration [Unknown]
  - Weight increased [Unknown]
  - Diarrhoea [Not Recovered/Not Resolved]
  - Depression [Recovering/Resolving]
  - Movement disorder [Unknown]
  - Feeling of despair [Unknown]
  - Negative thoughts [Unknown]
  - Anxiety [Recovering/Resolving]
  - Drug ineffective [Unknown]
  - Emotional disorder [Unknown]
  - Amnesia [Unknown]
  - Joint lock [Unknown]
  - Panic disorder [Unknown]
  - Mood swings [Unknown]
  - Influenza like illness [Unknown]
  - Abdominal pain [Unknown]
  - Adjustment disorder [Unknown]
  - Anger [Unknown]
  - Discomfort [Unknown]
  - Chills [Unknown]
  - Weight decreased [Unknown]
  - Tremor [Unknown]
  - Irritability [Recovering/Resolving]
  - Abnormal behaviour [Unknown]
  - Blood urine present [Unknown]
  - Injection site pain [Unknown]
  - Depressed mood [Not Recovered/Not Resolved]
  - Fall [Unknown]
  - Social avoidant behaviour [Unknown]
  - Depressive symptom [Recovering/Resolving]
  - Suicidal ideation [Unknown]

NARRATIVE: CASE EVENT DATE: 20130804
